FAERS Safety Report 17389993 (Version 1)
Quarter: 2020Q1

REPORT INFORMATION
  Report Type: Spontaneous
  Country: US (occurrence: US)
  Receive Date: 20200207
  Receipt Date: 20200207
  Transmission Date: 20200409
  Serious: No
  Sender: FDA-Public Use
  Company Number: US-009507513-2002USA001021

PATIENT
  Age: 38 Year
  Sex: Male

DRUGS (13)
  1. CLOMID [Suspect]
     Active Substance: CLOMIPHENE CITRATE
  2. ANASTROZOLE. [Concomitant]
     Active Substance: ANASTROZOLE
  3. PREDNISONE. [Suspect]
     Active Substance: PREDNISONE
  4. ALLEGRA [Concomitant]
     Active Substance: FEXOFENADINE HYDROCHLORIDE
  5. KETOTIFEN FUMARATE. [Concomitant]
     Active Substance: KETOTIFEN FUMARATE
  6. PEPCID [Concomitant]
     Active Substance: FAMOTIDINE
  7. SINGULAIR [Concomitant]
     Active Substance: MONTELUKAST SODIUM
  8. PREGNYL [Suspect]
     Active Substance: CHORIOGONADOTROPIN ALFA
     Indication: BLOOD TESTOSTERONE DECREASED
  9. GONADOTROPIN, CHORIONIC [Suspect]
     Active Substance: CHORIOGONADOTROPIN ALFA
  10. TAMOXIFEN [Suspect]
     Active Substance: TAMOXIFEN
  11. VALSARTAN. [Suspect]
     Active Substance: VALSARTAN
  12. PREGNYL [Suspect]
     Active Substance: CHORIOGONADOTROPIN ALFA
     Indication: SPERM CONCENTRATION DECREASED
     Dosage: 2000 USP TWICE DAILY, ROUTE OF ADMINISTRATION INJECTION
     Dates: start: 20190411, end: 20200114
  13. HYDROCHLOROTHIAZIDE. [Suspect]
     Active Substance: HYDROCHLOROTHIAZIDE

REACTIONS (8)
  - Therapeutic product effect incomplete [Unknown]
  - Blood testosterone decreased [Not Recovered/Not Resolved]
  - Injection site pain [Not Recovered/Not Resolved]
  - Asthenia [Not Recovered/Not Resolved]
  - Visual impairment [Not Recovered/Not Resolved]
  - Adverse reaction [Not Recovered/Not Resolved]
  - Product dose omission [Unknown]
  - Product use in unapproved indication [Unknown]

NARRATIVE: CASE EVENT DATE: 20190411
